FAERS Safety Report 18685531 (Version 3)
Quarter: 2021Q2

REPORT INFORMATION
  Report Type: Spontaneous
  Country: FR (occurrence: FR)
  Receive Date: 20201230
  Receipt Date: 20210422
  Transmission Date: 20210717
  Serious: Yes (Other)
  Sender: FDA-Public Use
  Company Number: FR-ALXN-A202019174

PATIENT
  Sex: Female

DRUGS (3)
  1. SOLIRIS [Suspect]
     Active Substance: ECULIZUMAB
     Indication: COVID-19 TREATMENT
  2. SOLIRIS [Suspect]
     Active Substance: ECULIZUMAB
     Indication: NEUROMYELITIS OPTICA SPECTRUM DISORDER
     Dosage: 1200 MG, UNK
     Route: 065
     Dates: start: 202011, end: 202103
  3. SOLIRIS [Suspect]
     Active Substance: ECULIZUMAB
     Indication: OFF LABEL USE

REACTIONS (2)
  - Neuromyelitis optica spectrum disorder [Recovering/Resolving]
  - Off label use [Unknown]

NARRATIVE: CASE EVENT DATE: 202011
